FAERS Safety Report 18510320 (Version 1)
Quarter: 2020Q4

REPORT INFORMATION
  Report Type: Spontaneous
  Country: US (occurrence: US)
  Receive Date: 20201116
  Receipt Date: 20201116
  Transmission Date: 20210114
  Serious: Yes (Life-Threatening)
  Sender: FDA-Public Use
  Company Number: None

PATIENT
  Age: 56 Year
  Sex: Male
  Weight: 77.1 kg

DRUGS (2)
  1. VANCOMYCIN [Suspect]
     Active Substance: VANCOMYCIN
     Indication: CELLULITIS
     Dates: start: 20201113
  2. CEFTRIAXONE 1GRAM, [Concomitant]
     Dates: start: 20201113

REACTIONS (3)
  - Dyspnoea [None]
  - Anaphylactic reaction [None]
  - Livedo reticularis [None]

NARRATIVE: CASE EVENT DATE: 20201113
